FAERS Safety Report 10302884 (Version 1)
Quarter: 2014Q3

REPORT INFORMATION
  Report Type: Spontaneous
  Country: FR (occurrence: FR)
  Receive Date: 20140714
  Receipt Date: 20140714
  Transmission Date: 20150326
  Serious: Yes (Hospitalization)
  Sender: FDA-Public Use
  Company Number: FR-TEVA-493353ISR

PATIENT
  Age: 56 Year
  Sex: Female

DRUGS (6)
  1. DOLIPRANE [Suspect]
     Active Substance: ACETAMINOPHEN
     Indication: OROPHARYNGEAL PAIN
     Dosage: 6 GRAM DAILY;
     Route: 048
     Dates: start: 20131119, end: 20131125
  2. SIFROL 0.52MG [Concomitant]
     Dosage: .52 MILLIGRAM DAILY; LONG-TERM TREATMENT, ONGOING
     Route: 048
  3. SINEMET [Concomitant]
     Active Substance: CARBIDOPA\LEVODOPA
     Dosage: 3 DOSAGE FORMS DAILY; LONG-TERM TREATMENT, ONGOING
     Route: 048
  4. AZILECT [Suspect]
     Active Substance: RASAGILINE MESYLATE
     Dosage: 1 MILLIGRAM DAILY;
     Route: 048
     Dates: start: 20131113, end: 20140110
  5. AUGMENTIN [Suspect]
     Active Substance: AMOXICILLIN\CLAVULANATE POTASSIUM
     Indication: OROPHARYNGEAL PAIN
     Dosage: 3 GRAM DAILY;
     Route: 048
     Dates: start: 20131119, end: 20131123
  6. ARTANE 2MG [Concomitant]
     Dosage: 6 MILLIGRAM DAILY; LONG-TERM TREATMENT, ONGOING
     Route: 048

REACTIONS (1)
  - Hepatitis [Recovered/Resolved]

NARRATIVE: CASE EVENT DATE: 20131218
